FAERS Safety Report 8344055-0 (Version None)
Quarter: 2012Q2

REPORT INFORMATION
  Report Type: 
  Country: None (occurrence: None)
  Receive Date: 20120508
  Receipt Date: 20120501
  Transmission Date: 20120825
  Serious: Yes (Disabling, Other)
  Sender: FDA-Public Use
  Company Number: US-BAYER-2012-042695

PATIENT
  Sex: Male

DRUGS (1)
  1. GADOLINIUM IN UNSPECIFIED DRUG [Suspect]
     Indication: NUCLEAR MAGNETIC RESONANCE IMAGING
     Dosage: UNK
     Dates: start: 20091121, end: 20091121

REACTIONS (7)
  - MUSCULAR WEAKNESS [None]
  - DISABILITY [None]
  - ARTHRITIS INFECTIVE [None]
  - JOINT RANGE OF MOTION DECREASED [None]
  - MUSCULOSKELETAL PAIN [None]
  - MUSCULOSKELETAL DISCOMFORT [None]
  - EMOTIONAL DISTRESS [None]
